FAERS Safety Report 5799860-1 (Version None)
Quarter: 2008Q3

REPORT INFORMATION
  Report Type: 
  Country: None (occurrence: None)
  Receive Date: 20080703
  Receipt Date: 20080625
  Transmission Date: 20090109
  Serious: Yes (Hospitalization, Other)
  Sender: FDA-Public Use
  Company Number: US-BAYER-200811734NA

PATIENT
  Age: 55 Year
  Sex: Female
  Weight: 74 kg

DRUGS (16)
  1. CAMPATH [Suspect]
     Indication: CHRONIC LYMPHOCYTIC LEUKAEMIA
     Dosage: TOTAL DAILY DOSE: 30 MG
     Route: 058
     Dates: start: 20070327, end: 20070427
  2. FLUDARABINE PHOSPHATE [Suspect]
     Indication: CHRONIC LYMPHOCYTIC LEUKAEMIA
     Dosage: AS USED: 25 MG/M2
     Dates: start: 20060701, end: 20061101
  3. RITUXIMAB [Suspect]
     Indication: CHRONIC LYMPHOCYTIC LEUKAEMIA
     Dosage: AS USED: 375 MG/M2
     Route: 042
  4. RITUXIMAB [Suspect]
     Dosage: AS USED: 50 MG/M2
     Route: 042
     Dates: start: 20060701
  5. RITUXIMAB [Suspect]
     Dosage: AS USED: 325 MG/M2
     Route: 042
  6. RITUXIMAB [Suspect]
     Dosage: AS USED: 375 MG/M2
     Route: 042
     Dates: end: 20061101
  7. BACTRIM DS [Concomitant]
     Indication: PROPHYLAXIS
     Route: 048
  8. VALACYCLOVIR [Concomitant]
     Indication: PROPHYLAXIS
     Dosage: TOTAL DAILY DOSE: 1000 MG
     Route: 048
  9. TRAZODONE HCL [Concomitant]
     Dosage: TOTAL DAILY DOSE: 50 MG
     Route: 048
  10. LITHIUM CARBONATE [Concomitant]
     Indication: BIPOLAR DISORDER
     Dosage: TOTAL DAILY DOSE: 450 MG
     Route: 048
  11. LITHIUM CARBONATE [Concomitant]
     Dosage: TOTAL DAILY DOSE: 450 MG
     Route: 048
     Dates: start: 20070501
  12. PROZAC [Concomitant]
     Indication: BIPOLAR DISORDER
     Dosage: TOTAL DAILY DOSE: 30 MG
     Route: 048
     Dates: start: 20070501
  13. PROZAC [Concomitant]
     Dosage: TOTAL DAILY DOSE: 20 MG
     Route: 048
  14. CALCIUM [Concomitant]
  15. CENTRUM SILVER [Concomitant]
  16. IRON [Concomitant]

REACTIONS (8)
  - CYTOMEGALOVIRUS TEST POSITIVE [None]
  - DEPRESSION [None]
  - DYSGEUSIA [None]
  - FATIGUE [None]
  - FEBRILE NEUTROPENIA [None]
  - HAEMOGLOBINAEMIA [None]
  - NAUSEA [None]
  - NEUTROPHIL COUNT DECREASED [None]
